FAERS Safety Report 7114132-0 (Version None)
Quarter: 2010Q4

REPORT INFORMATION
  Report Type: 
  Country: None (occurrence: None)
  Receive Date: 20101119
  Receipt Date: 20101110
  Transmission Date: 20110411
  Serious: Yes (Hospitalization)
  Sender: FDA-Public Use
  Company Number: JP-GENZYME-RENA-1000832

PATIENT
  Age: 69 Year
  Sex: Male

DRUGS (6)
  1. RENAGEL [Suspect]
     Indication: HYPERPHOSPHATAEMIA
     Dosage: UNK
     Route: 048
  2. NIFEDIPINE [Concomitant]
     Dosage: UNK
     Route: 048
  3. TROPIXIDE [Concomitant]
     Route: 048
  4. CALCIUM CARBONATE [Concomitant]
     Route: 048
  5. OLMESARTAN MEDOXOMIL [Concomitant]
     Route: 048
  6. FUROSEMIDE [Concomitant]
     Route: 065

REACTIONS (1)
  - DIVERTICULUM INTESTINAL HAEMORRHAGIC [None]
